FAERS Safety Report 12463164 (Version 1)
Quarter: 2016Q2

REPORT INFORMATION
  Report Type: Spontaneous
  Country: US (occurrence: US)
  Receive Date: 20160614
  Receipt Date: 20160614
  Transmission Date: 20160815
  Serious: Yes (Hospitalization)
  Sender: FDA-Public Use
  Company Number: US-UCBSA-2016021651

PATIENT
  Age: 15 Year
  Sex: Male
  Weight: 59 kg

DRUGS (7)
  1. 6-MP [Concomitant]
     Active Substance: MERCAPTOPURINE
     Indication: CROHN^S DISEASE
     Dosage: 50 MG, DAILY
     Route: 048
     Dates: start: 2014, end: 201602
  2. MULTIVITAMIN [Concomitant]
     Active Substance: VITAMINS
     Indication: PRODUCT USED FOR UNKNOWN INDICATION
     Dosage: 2 DF, DAILY
     Dates: start: 2013
  3. VIMPAT [Suspect]
     Active Substance: LACOSAMIDE
     Indication: PRODUCT USED FOR UNKNOWN INDICATION
     Dosage: 100MG TABLETS 3 QAM AND 2QPM; 2X/DAY (BID)
     Route: 048
     Dates: start: 201502
  4. VITAMIN D [Concomitant]
     Active Substance: CHOLECALCIFEROL
     Indication: PRODUCT USED FOR UNKNOWN INDICATION
     Dosage: 1000 DF, DAILY
     Route: 048
     Dates: start: 201506
  5. LEVETIRACETAM. [Concomitant]
     Active Substance: LEVETIRACETAM
     Indication: PRODUCT USED FOR UNKNOWN INDICATION
     Dosage: 1500 MG, DAILY
     Dates: start: 201412
  6. 6-MP [Concomitant]
     Active Substance: MERCAPTOPURINE
     Dosage: 25 MG, DAILY
     Route: 048
     Dates: start: 201602
  7. VITAMIN B6 [Concomitant]
     Active Substance: PYRIDOXINE HYDROCHLORIDE
     Indication: PRODUCT USED FOR UNKNOWN INDICATION
     Dosage: UNK
     Dates: start: 201412

REACTIONS (5)
  - Brain operation [Recovered/Resolved]
  - Vitamin D decreased [Recovered/Resolved]
  - Overdose [Unknown]
  - Off label use [Unknown]
  - White blood cell count decreased [Recovered/Resolved]

NARRATIVE: CASE EVENT DATE: 201502
